FAERS Safety Report 17390600 (Version 1)
Quarter: 2020Q1

REPORT INFORMATION
  Report Type: Spontaneous
  Country: US (occurrence: US)
  Receive Date: 20200207
  Receipt Date: 20200207
  Transmission Date: 20200409
  Serious: Yes (Other)
  Sender: FDA-Public Use
  Company Number: US-BIOVITRUM-2020US0513

PATIENT
  Age: 8 Year

DRUGS (4)
  1. ANAKINRA [Suspect]
     Active Substance: ANAKINRA
     Indication: HAEMOPHAGOCYTIC LYMPHOHISTIOCYTOSIS
  2. ANAKINRA [Suspect]
     Active Substance: ANAKINRA
     Indication: COELIAC DISEASE
  3. INFLIXIMAB [Suspect]
     Active Substance: INFLIXIMAB
  4. SOLU-MEDROL [Suspect]
     Active Substance: METHYLPREDNISOLONE SODIUM SUCCINATE

REACTIONS (4)
  - Condition aggravated [Unknown]
  - Off label use [Unknown]
  - Haemophagocytic lymphohistiocytosis [Unknown]
  - Pathological fracture [Unknown]
